FAERS Safety Report 4469348-9 (Version None)
Quarter: 2004Q4

REPORT INFORMATION
  Report Type: 
  Country: None (occurrence: None)
  Receive Date: 20041008
  Receipt Date: 20040202
  Transmission Date: 20050328
  Serious: No
  Sender: FDA-Public Use
  Company Number: US-BRISTOL-MYERS SQUIBB COMPANY-12493615

PATIENT
  Age: 73 Year
  Sex: Male
  Weight: 65 kg

DRUGS (1)
  1. AVAPRO [Suspect]
     Indication: HYPERTENSION
     Dosage: 01/12/04: 75 MG DAILY ; ~01/23/04: INCREASED TO 150 MG DAILY; DOSE REDUCED TO 75 MG
     Route: 048
     Dates: start: 20040112

REACTIONS (1)
  - DIZZINESS [None]
